FAERS Safety Report 18891659 (Version 4)
Quarter: 2022Q3

REPORT INFORMATION
  Report Type: Spontaneous
  Country: US (occurrence: US)
  Receive Date: 20210215
  Receipt Date: 20220729
  Transmission Date: 20221026
  Serious: Yes (Other)
  Sender: FDA-Public Use
  Company Number: US-SA-SAC20210212000119

PATIENT
  Age: 5 Year
  Sex: Male

DRUGS (4)
  1. ALPROLIX [Suspect]
     Active Substance: EFTRENONACOG ALFA
     Indication: Factor IX deficiency
     Dosage: 2000 IU, QW
     Route: 042
     Dates: start: 20170302
  2. ALPROLIX [Suspect]
     Active Substance: EFTRENONACOG ALFA
     Indication: Factor IX deficiency
     Dosage: 2000 IU, QW
     Route: 042
     Dates: start: 20170302
  3. ALPROLIX [Suspect]
     Active Substance: EFTRENONACOG ALFA
     Dosage: 200 U, PRN
     Route: 042
     Dates: start: 202003
  4. ALPROLIX [Suspect]
     Active Substance: EFTRENONACOG ALFA
     Dosage: 200 U, PRN
     Route: 042
     Dates: start: 202003

REACTIONS (4)
  - Haemorrhage [Not Recovered/Not Resolved]
  - Fall [Unknown]
  - Traumatic haemorrhage [Unknown]
  - Contusion [Unknown]

NARRATIVE: CASE EVENT DATE: 20220620
